FAERS Safety Report 4436596-3 (Version None)
Quarter: 2004Q3

REPORT INFORMATION
  Report Type: 
  Country: None (occurrence: None)
  Receive Date: 20040830
  Receipt Date: 20040713
  Transmission Date: 20050211
  Serious: Yes (Hospitalization)
  Sender: FDA-Public Use
  Company Number: US-BRISTOL-MYERS SQUIBB COMPANY-12638565

PATIENT
  Age: 72 Year
  Sex: Male
  Weight: 83 kg

DRUGS (10)
  1. ABILIFY [Suspect]
     Indication: PSYCHOTIC DISORDER
     Route: 048
     Dates: start: 20040504, end: 20040506
  2. SIMVASTATIN [Concomitant]
  3. SINEMET [Concomitant]
     Dosage: 25/100 MG CONTROLLED RELEASE TABLET BID
     Route: 048
  4. METOPROLOL [Concomitant]
  5. DIFORMIN [Concomitant]
  6. SYNTHROID [Concomitant]
  7. HYDROCHLOROTHIAZIDE [Concomitant]
  8. PROTONIX [Concomitant]
  9. MIRAPEX [Concomitant]
  10. ALLOPURINOL [Concomitant]

REACTIONS (1)
  - PARKINSON'S DISEASE [None]
